FAERS Safety Report 10748061 (Version 2)
Quarter: 2015Q1

REPORT INFORMATION
  Report Type: Spontaneous
  Country: JP (occurrence: JP)
  Receive Date: 20150129
  Receipt Date: 20150218
  Transmission Date: 20150721
  Serious: Yes (Other)
  Sender: FDA-Public Use
  Company Number: JP-JNJFOC-20150118097

PATIENT
  Age: 5 Decade
  Sex: Male

DRUGS (1)
  1. TRAMCET [Suspect]
     Active Substance: ACETAMINOPHEN\TRAMADOL
     Indication: PAIN
     Route: 048
     Dates: start: 201408

REACTIONS (2)
  - Cholelithiasis [Unknown]
  - Cholangitis [Recovered/Resolved]

NARRATIVE: CASE EVENT DATE: 20150119
